FAERS Safety Report 18774849 (Version 3)
Quarter: 2025Q3

REPORT INFORMATION
  Report Type: Spontaneous
  Country: CA (occurrence: CA)
  Receive Date: 20210122
  Receipt Date: 20250804
  Transmission Date: 20251021
  Serious: Yes (Other)
  Sender: PURDUE
  Company Number: CA-PURDUE-USA-2020-0196940

PATIENT
  Sex: Male

DRUGS (5)
  1. OXYCONTIN [Suspect]
     Active Substance: OXYCODONE HYDROCHLORIDE
     Indication: Pain
     Route: 048
  2. HYDROMORPHONE HYDROCHLORIDE [Suspect]
     Active Substance: HYDROMORPHONE HYDROCHLORIDE
     Indication: Product used for unknown indication
     Route: 048
  3. MORPHINE SULFATE [Suspect]
     Active Substance: MORPHINE SULFATE
     Indication: Pain
     Route: 065
  4. ACETAMINOPHEN\OXYCODONE HYDROCHLORIDE\OXYCODONE TEREPHTHALATE [Suspect]
     Active Substance: ACETAMINOPHEN\OXYCODONE HYDROCHLORIDE\OXYCODONE TEREPHTHALATE
     Indication: Product used for unknown indication
     Route: 065
  5. TYLENOL [Suspect]
     Active Substance: ACETAMINOPHEN
     Indication: Product used for unknown indication
     Route: 065

REACTIONS (18)
  - Intentional self-injury [Unknown]
  - Suicidal ideation [Unknown]
  - Drug dependence [Unknown]
  - Psychotic disorder [Unknown]
  - Impaired driving ability [Unknown]
  - Cognitive disorder [Unknown]
  - Amnesia [Unknown]
  - Apathy [Unknown]
  - Impaired quality of life [Unknown]
  - Pain [Unknown]
  - Emotional distress [Unknown]
  - Depression [Unknown]
  - Hypoaesthesia [Unknown]
  - Impaired work ability [Unknown]
  - Mood altered [Unknown]
  - Fall [Unknown]
  - Product prescribing issue [Unknown]
  - Inadequate analgesia [Unknown]

NARRATIVE: CASE EVENT DATE: 20030101
